FAERS Safety Report 13470137 (Version 9)
Quarter: 2017Q3

REPORT INFORMATION
  Report Type: Spontaneous
  Country: KR (occurrence: KR)
  Receive Date: 20170423
  Receipt Date: 20170912
  Transmission Date: 20171127
  Serious: Yes (Hospitalization, Other)
  Sender: FDA-Public Use
  Company Number: KR-009507513-1704KOR009335

PATIENT
  Age: 69 Year
  Sex: Male
  Weight: 66.7 kg

DRUGS (45)
  1. EMEND (FOSAPREPITANT DIMEGLUMINE) [Suspect]
     Active Substance: FOSAPREPITANT DIMEGLUMINE
     Dosage: 150 MG, ONCE
     Route: 042
     Dates: start: 20161214, end: 20161214
  2. CISPLAN [Concomitant]
     Active Substance: CISPLATIN
     Indication: SMALL CELL LUNG CANCER
     Dosage: 128 MG, ONCE, CYCLE 1
     Route: 042
     Dates: start: 20161013, end: 20161013
  3. CISPLAN [Concomitant]
     Active Substance: CISPLATIN
     Dosage: 128 MG, ONCE, CYCLE 2
     Route: 042
     Dates: start: 20161103, end: 20161103
  4. DEXAMETHASONE SODIUM PHOSPHATE. [Concomitant]
     Active Substance: DEXAMETHASONE SODIUM PHOSPHATE
     Dosage: 8 MG, QD
     Route: 042
     Dates: start: 20161104, end: 20161105
  5. DEXAMETHASONE SODIUM PHOSPHATE. [Concomitant]
     Active Substance: DEXAMETHASONE SODIUM PHOSPHATE
     Dosage: 12 MG, ONCE
     Route: 042
     Dates: start: 20161123, end: 20161123
  6. DEXAMETHASONE SODIUM PHOSPHATE. [Concomitant]
     Active Substance: DEXAMETHASONE SODIUM PHOSPHATE
     Dosage: 12 MG, ONCE
     Route: 042
     Dates: start: 20161214, end: 20161214
  7. NASERON [Concomitant]
     Dosage: 0.3 MG, ONCE
     Route: 042
     Dates: start: 20161103, end: 20161103
  8. NASERON [Concomitant]
     Dosage: 0.3 MG, ONCE
     Route: 042
     Dates: start: 20170116, end: 20170116
  9. THIAMINE HYDROCHLORIDE. [Concomitant]
     Active Substance: THIAMINE HYDROCHLORIDE
     Indication: ASTHENIA
     Dosage: 100 MG, QD
     Route: 042
     Dates: start: 20160930, end: 20161022
  10. EMEND (FOSAPREPITANT DIMEGLUMINE) [Suspect]
     Active Substance: FOSAPREPITANT DIMEGLUMINE
     Dosage: 150 MG, ONCE
     Route: 042
     Dates: start: 20170116, end: 20170116
  11. LASTET [Concomitant]
     Active Substance: ETOPOSIDE
     Dosage: 174 MG, QD, CYCLE 3
     Route: 042
     Dates: start: 20161123, end: 20161125
  12. DEXAMETHASONE SODIUM PHOSPHATE. [Concomitant]
     Active Substance: DEXAMETHASONE SODIUM PHOSPHATE
     Dosage: 12 MG, ONCE
     Route: 042
     Dates: start: 20170116, end: 20170116
  13. DEXAMETHASONE SODIUM PHOSPHATE. [Concomitant]
     Active Substance: DEXAMETHASONE SODIUM PHOSPHATE
     Dosage: 8 MG, QD
     Route: 042
     Dates: start: 20170117, end: 20170118
  14. EMEND (FOSAPREPITANT DIMEGLUMINE) [Suspect]
     Active Substance: FOSAPREPITANT DIMEGLUMINE
     Dosage: 150 MG, ONCE
     Route: 042
     Dates: start: 20161123, end: 20161123
  15. CISPLAN [Concomitant]
     Active Substance: CISPLATIN
     Dosage: 130 MG, ONCE, CYCLE 3
     Route: 042
     Dates: start: 20161123, end: 20161123
  16. CISPLAN [Concomitant]
     Active Substance: CISPLATIN
     Dosage: 98 MG, ONCE, CYCLE 4
     Route: 042
     Dates: start: 20161214, end: 20161214
  17. DEXAMETHASONE SODIUM PHOSPHATE. [Concomitant]
     Active Substance: DEXAMETHASONE SODIUM PHOSPHATE
     Dosage: 8 MG, QD
     Route: 042
     Dates: start: 20161014, end: 20161015
  18. DEXAMETHASONE SODIUM PHOSPHATE. [Concomitant]
     Active Substance: DEXAMETHASONE SODIUM PHOSPHATE
     Dosage: 12 MG, ONCE
     Route: 042
     Dates: start: 20161103, end: 20161103
  19. DEXAMETHASONE SODIUM PHOSPHATE. [Concomitant]
     Active Substance: DEXAMETHASONE SODIUM PHOSPHATE
     Dosage: 8 MG, QD
     Route: 042
     Dates: start: 20161124, end: 20161125
  20. NASERON [Concomitant]
     Indication: PREMEDICATION
     Dosage: 0.3 MG, ONCE
     Route: 042
     Dates: start: 20161013, end: 20161013
  21. PANPRAZOL [Concomitant]
     Indication: PROPHYLAXIS
     Dosage: 20 MG (1 TABLET), QD
     Route: 048
     Dates: end: 20161002
  22. CELEBREX [Concomitant]
     Active Substance: CELECOXIB
     Indication: PROPHYLAXIS
     Dosage: 200 MG (1 CAPSULE), QD
     Route: 048
     Dates: end: 20161002
  23. PIPERACILLIN AND TAZOBACTAM [Concomitant]
     Active Substance: PIPERACILLIN SODIUM\TAZOBACTAM SODIUM
     Indication: PROPHYLAXIS
     Dosage: 4.5 G, QD
     Route: 042
     Dates: start: 20161015, end: 20161030
  24. EMEND (FOSAPREPITANT DIMEGLUMINE) [Suspect]
     Active Substance: FOSAPREPITANT DIMEGLUMINE
     Dosage: 150 MG, ONCE
     Route: 042
     Dates: start: 20161103, end: 20161103
  25. CISPLAN [Concomitant]
     Active Substance: CISPLATIN
     Dosage: 96 MG, ONCE, CYCLE 5
     Route: 042
     Dates: start: 20170116, end: 20170116
  26. LASTET [Concomitant]
     Active Substance: ETOPOSIDE
     Dosage: 171 MG, QD, CYCLE 5
     Route: 042
     Dates: start: 20170116, end: 20170118
  27. NORVASC [Concomitant]
     Active Substance: AMLODIPINE BESYLATE
     Indication: HYPERTENSION
     Dosage: 5 MG (1 TABLET), QD
     Route: 048
  28. MAGO [Concomitant]
     Indication: CONSTIPATION PROPHYLAXIS
     Dosage: 250 MG (1 TABLET), TID
     Route: 048
     Dates: start: 20161011, end: 20161216
  29. LASTET [Concomitant]
     Active Substance: ETOPOSIDE
     Indication: SMALL CELL LUNG CANCER
     Dosage: 171 MG, QD, CYCLE 1
     Route: 042
     Dates: start: 20161013, end: 20161015
  30. SINGULAIR [Concomitant]
     Active Substance: MONTELUKAST SODIUM
     Indication: CHRONIC OBSTRUCTIVE PULMONARY DISEASE
     Dosage: 5 MG (1 TABLET), QD
     Route: 048
  31. ASIMA [Concomitant]
     Indication: CHRONIC OBSTRUCTIVE PULMONARY DISEASE
     Dosage: 400 MG (1 TABLET), QD
     Route: 048
  32. PERDIPINE [Concomitant]
     Active Substance: NICARDIPINE HYDROCHLORIDE
     Indication: HYPERTENSION
     Dosage: 3 MG, ONCE
     Route: 042
     Dates: start: 20161015, end: 20161015
  33. LASTET [Concomitant]
     Active Substance: ETOPOSIDE
     Dosage: 174 MG, QD, CYCLE 4
     Route: 042
     Dates: start: 20161214, end: 20161216
  34. DEXAMETHASONE SODIUM PHOSPHATE. [Concomitant]
     Active Substance: DEXAMETHASONE SODIUM PHOSPHATE
     Indication: PREMEDICATION
     Dosage: 12 MG, ONCE
     Route: 042
     Dates: start: 20161013, end: 20161013
  35. HEXAMEDINE [Concomitant]
     Indication: PROPHYLAXIS
     Dosage: 1 BTL, QD
     Route: 048
     Dates: start: 20161013
  36. CLOPIRIN [Concomitant]
     Indication: HYPERLIPIDAEMIA
     Dosage: 1 CAPSULE, QD
     Route: 048
  37. ERDOS [Concomitant]
     Indication: CHRONIC OBSTRUCTIVE PULMONARY DISEASE
     Dosage: 300 MG, TID
     Route: 048
     Dates: start: 20161006
  38. LASTET [Concomitant]
     Active Substance: ETOPOSIDE
     Dosage: 171 MG, QD, CYCLE 2
     Route: 042
     Dates: start: 20161103, end: 20161115
  39. DEXAMETHASONE SODIUM PHOSPHATE. [Concomitant]
     Active Substance: DEXAMETHASONE SODIUM PHOSPHATE
     Dosage: 8 MG, QD
     Route: 042
     Dates: start: 20161215, end: 20161216
  40. NASERON [Concomitant]
     Dosage: 0.3 MG, ONCE
     Route: 042
     Dates: start: 20161123, end: 20161123
  41. ATACAND PLUS [Concomitant]
     Active Substance: CANDESARTAN CILEXETIL\HYDROCHLOROTHIAZIDE
     Indication: HYPERTENSION
     Dosage: 1 TABLET (16/12.5 MG), QD
     Route: 048
     Dates: end: 20161104
  42. PULMICORT TURBUHALER [Concomitant]
     Active Substance: BUDESONIDE
     Indication: CHRONIC OBSTRUCTIVE PULMONARY DISEASE
     Dosage: 2 ML, QID
     Route: 055
     Dates: start: 20161002, end: 20161016
  43. EMEND (FOSAPREPITANT DIMEGLUMINE) [Suspect]
     Active Substance: FOSAPREPITANT DIMEGLUMINE
     Indication: PROPHYLAXIS OF NAUSEA AND VOMITING
     Dosage: 150 MG, ONCE
     Route: 042
     Dates: start: 20161013, end: 20161013
  44. NASERON [Concomitant]
     Dosage: 0.3 MG, ONCE
     Route: 042
     Dates: start: 20161214, end: 20161214
  45. SPIRIVA [Concomitant]
     Active Substance: TIOTROPIUM BROMIDE MONOHYDRATE
     Indication: CHRONIC OBSTRUCTIVE PULMONARY DISEASE
     Dosage: 1 BTL, QD
     Route: 055
     Dates: start: 20161006

REACTIONS (9)
  - Pneumonia [Recovered/Resolved]
  - Dysuria [Recovered/Resolved]
  - Hyperglycaemia [Recovered/Resolved]
  - Asthenia [Recovered/Resolved]
  - Dyspnoea [Recovered/Resolved]
  - Influenza [Recovered/Resolved]
  - Arthralgia [Recovered/Resolved]
  - Neutrophil count decreased [Recovered/Resolved]
  - Insomnia [Unknown]

NARRATIVE: CASE EVENT DATE: 20161015
